FAERS Safety Report 4514597-4 (Version None)
Quarter: 2004Q4

REPORT INFORMATION
  Report Type: 
  Country: None (occurrence: None)
  Receive Date: 20041126
  Receipt Date: 20041115
  Transmission Date: 20050328
  Serious: Yes (Hospitalization)
  Sender: FDA-Public Use
  Company Number: 2004EU002067

PATIENT
  Age: 42 Year
  Sex: Male

DRUGS (1)
  1. PROGRAF [Suspect]
     Indication: LIVER TRANSPLANT

REACTIONS (4)
  - BILE DUCT STENOSIS [None]
  - HAEMATOMA [None]
  - NEUROTOXICITY [None]
  - SUBARACHNOID HAEMORRHAGE [None]
